FAERS Safety Report 15568739 (Version 2)
Quarter: 2018Q4

REPORT INFORMATION
  Report Type: Spontaneous
  Country: FR (occurrence: FR)
  Receive Date: 20181031
  Receipt Date: 20181217
  Transmission Date: 20190205
  Serious: Yes (Hospitalization, Other)
  Sender: FDA-Public Use
  Company Number: FR-ROCHE-2207533

PATIENT
  Age: 4 Year
  Sex: Male
  Weight: 14.7 kg

DRUGS (2)
  1. ROACTEMRA [Suspect]
     Active Substance: TOCILIZUMAB
     Indication: CASTLEMAN^S DISEASE
     Dosage: 180 MG TOTAL MONTHLY DOSE
     Route: 042
     Dates: start: 20181005
  2. ROACTEMRA [Suspect]
     Active Substance: TOCILIZUMAB
     Route: 042
     Dates: start: 20181008

REACTIONS (6)
  - Platelet disorder [Unknown]
  - Haematoma [Unknown]
  - Pharyngeal haematoma [Unknown]
  - Intentional product use issue [Unknown]
  - Off label use [Unknown]
  - Disseminated intravascular coagulation [Recovering/Resolving]

NARRATIVE: CASE EVENT DATE: 20181011
